FAERS Safety Report 11102942 (Version 2)
Quarter: 2015Q2

REPORT INFORMATION
  Report Type: Spontaneous
  Country: ES (occurrence: ES)
  Receive Date: 20150511
  Receipt Date: 20150528
  Transmission Date: 20150821
  Serious: Yes (Other)
  Sender: FDA-Public Use
  Company Number: ES-PFIZER INC-2015155493

PATIENT
  Age: 66 Year
  Sex: Male

DRUGS (8)
  1. PANTOPRAZOLE [Concomitant]
     Active Substance: PANTOPRAZOLE SODIUM
     Indication: ATRIAL FLUTTER
     Dosage: UNK
     Dates: start: 20141117
  2. ALPRAZOLAM STADA [Concomitant]
     Indication: TREMOR
     Dosage: UNK
     Dates: start: 20140331
  3. TRANGOREX [Suspect]
     Active Substance: AMIODARONE HYDROCHLORIDE
     Indication: ARRHYTHMIA
     Dosage: 200 MG, 5 TIMES A WEEK
     Route: 065
     Dates: start: 20130916, end: 20150401
  4. OLYSIO [Interacting]
     Active Substance: SIMEPREVIR
     Indication: HEPATITIS C
     Dosage: 150 MG, DAILY
     Route: 048
     Dates: start: 20150220
  5. SUMIAL [Interacting]
     Active Substance: PROPRANOLOL HYDROCHLORIDE
     Dosage: 40 MG, 3X/DAY
     Route: 065
     Dates: start: 20150218
  6. SOVALDI [Interacting]
     Active Substance: SOFOSBUVIR
     Indication: HEPATITIS C
     Dosage: 1 DF, DAILY
     Route: 048
     Dates: start: 20150220
  7. SINTROM [Concomitant]
     Active Substance: ACENOCOUMAROL
     Dosage: UNK
     Dates: start: 20071105
  8. MITEN /01319601/ [Concomitant]
     Dosage: UNK

REACTIONS (3)
  - Dizziness [Recovered/Resolved]
  - Drug interaction [Recovered/Resolved]
  - Bradycardia [Recovered/Resolved]

NARRATIVE: CASE EVENT DATE: 20150327
